FAERS Safety Report 17881605 (Version 3)
Quarter: 2020Q4

REPORT INFORMATION
  Report Type: Spontaneous
  Country: US (occurrence: US)
  Receive Date: 20200610
  Receipt Date: 20201012
  Transmission Date: 20210113
  Serious: Yes (Other)
  Sender: FDA-Public Use
  Company Number: US-SA-2020SA148558

PATIENT

DRUGS (1)
  1. DUPIXENT [Suspect]
     Active Substance: DUPILUMAB
     Indication: RHEUMATOID ARTHRITIS
     Dosage: 300 MG, QOW
     Route: 058
     Dates: start: 20200528

REACTIONS (3)
  - Staphylococcal infection [Unknown]
  - Product use in unapproved indication [Unknown]
  - Nasal disorder [Unknown]

NARRATIVE: CASE EVENT DATE: 2020
